FAERS Safety Report 5270493-9 (Version None)
Quarter: 2007Q1

REPORT INFORMATION
  Report Type: 
  Country: None (occurrence: None)
  Receive Date: 20070320
  Receipt Date: 20070316
  Transmission Date: 20070707
  Serious: Yes (Hospitalization)
  Sender: FDA-Public Use
  Company Number: US-MERCK-0703USA03388

PATIENT
  Age: 66 Year
  Sex: Male

DRUGS (1)
  1. ZETIA [Suspect]
     Route: 048

REACTIONS (3)
  - ABDOMINAL PAIN [None]
  - LYMPHOMA [None]
  - THROMBOCYTOPENIA [None]
